FAERS Safety Report 5442881-9 (Version None)
Quarter: 2007Q3

REPORT INFORMATION
  Report Type: 
  Country: None (occurrence: None)
  Receive Date: 20070831
  Receipt Date: 20070831
  Transmission Date: 20080115
  Serious: No
  Sender: FDA-Public Use
  Company Number: None

PATIENT
  Age: 45 Year
  Sex: Female
  Weight: 53.978 kg

DRUGS (6)
  1. DURAGESIC-25 [Suspect]
     Indication: FIBROMYALGIA
     Dosage: 1 PATCH EVERY 3 DAYS
     Dates: start: 20070107, end: 20070107
  2. DURAGESIC-25 [Suspect]
     Indication: INTERVERTEBRAL DISC PROTRUSION
     Dosage: 1 PATCH EVERY 3 DAYS
     Dates: start: 20070107, end: 20070107
  3. DURAGESIC-25 [Suspect]
     Indication: PAIN
     Dosage: 1 PATCH EVERY 3 DAYS
     Dates: start: 20070107, end: 20070107
  4. DURAGESIC-25 [Suspect]
     Indication: FIBROMYALGIA
     Dosage: 1 PATCH EVERY 3 DAYS
     Dates: start: 20070807, end: 20070807
  5. DURAGESIC-25 [Suspect]
     Indication: INTERVERTEBRAL DISC PROTRUSION
     Dosage: 1 PATCH EVERY 3 DAYS
     Dates: start: 20070807, end: 20070807
  6. DURAGESIC-25 [Suspect]
     Indication: PAIN
     Dosage: 1 PATCH EVERY 3 DAYS
     Dates: start: 20070807, end: 20070807

REACTIONS (5)
  - CONFUSIONAL STATE [None]
  - INCOHERENT [None]
  - NAUSEA [None]
  - PHARMACEUTICAL PRODUCT COMPLAINT [None]
  - VOMITING [None]
